FAERS Safety Report 5612079-X (Version None)
Quarter: 2008Q1

REPORT INFORMATION
  Report Type: 
  Country: None (occurrence: None)
  Receive Date: 20080131
  Receipt Date: 20080131
  Transmission Date: 20080703
  Serious: Yes (Other)
  Sender: FDA-Public Use
  Company Number: None

PATIENT
  Sex: Female
  Weight: 56.6996 kg

DRUGS (2)
  1. LEVAQUIN [Suspect]
     Indication: SINUSITIS
     Dosage: 750MG ONCE DAILY PO
     Route: 048
     Dates: start: 20071231, end: 20080102
  2. COUMADIN [Concomitant]

REACTIONS (6)
  - INJURY [None]
  - MALAISE [None]
  - MUSCLE RUPTURE [None]
  - PAIN [None]
  - TENDON DISORDER [None]
  - TENDONITIS [None]
